FAERS Safety Report 8472578-2 (Version None)
Quarter: 2012Q2

REPORT INFORMATION
  Report Type: 
  Country: None (occurrence: None)
  Receive Date: 20120627
  Receipt Date: 20111024
  Transmission Date: 20120825
  Serious: No
  Sender: FDA-Public Use
  Company Number: US-AMGEN-USASP2011055105

PATIENT
  Age: 78 Year
  Sex: Female
  Weight: 81.633 kg

DRUGS (1)
  1. PROCRIT [Suspect]
     Indication: ANAEMIA
     Dosage: 40000 IU, QMO

REACTIONS (2)
  - DIZZINESS [None]
  - HALLUCINATION, VISUAL [None]
